FAERS Safety Report 4342637-4 (Version None)
Quarter: 2004Q2

REPORT INFORMATION
  Report Type: 
  Country: None (occurrence: None)
  Receive Date: 20040421
  Receipt Date: 20040409
  Transmission Date: 20050107
  Serious: Yes (Hospitalization)
  Sender: FDA-Public Use
  Company Number: 200411527FR

PATIENT
  Age: 65 Year
  Sex: Female

DRUGS (5)
  1. FLAGYL [Suspect]
     Indication: HELICOBACTER INFECTION
     Route: 048
     Dates: start: 20031207, end: 20031214
  2. OMEPRAZOLE [Suspect]
     Route: 048
     Dates: end: 20031214
  3. NAXY [Suspect]
     Indication: HELICOBACTER INFECTION
     Route: 048
     Dates: start: 20031207, end: 20031214
  4. TEGRETOL [Concomitant]
     Indication: EPILEPSY
     Route: 048
  5. TOPIRAMATE [Concomitant]
     Indication: EPILEPSY
     Route: 048

REACTIONS (9)
  - ABASIA [None]
  - ANTICONVULSANT DRUG LEVEL INCREASED [None]
  - ATAXIA [None]
  - BRAIN SCAN ABNORMAL [None]
  - DYSARTHRIA [None]
  - FALL [None]
  - HYPONATRAEMIA [None]
  - NYSTAGMUS [None]
  - OPHTHALMOPLEGIA [None]
